FAERS Safety Report 4880871-5 (Version None)
Quarter: 2005Q4

REPORT INFORMATION
  Report Type: 
  Country: None (occurrence: None)
  Receive Date: 20051223
  Receipt Date: 20051111
  Transmission Date: 20060501
  Serious: No
  Sender: FDA-Public Use
  Company Number: 05P-163-0317088-00

PATIENT
  Age: 57 Year
  Sex: Female
  Weight: 56.246 kg

DRUGS (14)
  1. HUMIRA [Suspect]
     Indication: RHEUMATOID ARTHRITIS
     Dosage: 40 MG, 1 IN 2 WKS, SUBCUTANEOUS
     Route: 058
     Dates: start: 20040101
  2. ZOLOFT [Concomitant]
  3. ACETAMINOPHEN W/ CODEINE [Concomitant]
  4. CELECOXIB [Concomitant]
  5. PHENYTOIN SODIUM [Concomitant]
  6. PREDNISONE [Concomitant]
  7. PHENOBARBITAL TAB [Concomitant]
  8. ALENDROANTE SODIUM [Concomitant]
  9. AMITRIPTYLINE HCL [Concomitant]
  10. ATENOLOL [Concomitant]
  11. METHOTREXATE [Concomitant]
  12. FOLIC ACID [Concomitant]
  13. CYANOCOBALAMIN [Concomitant]
  14. MULTIVITAMIN [Concomitant]

REACTIONS (2)
  - INCREASED TENDENCY TO BRUISE [None]
  - SKIN ATROPHY [None]
